FAERS Safety Report 8447015-4 (Version None)
Quarter: 2012Q2

REPORT INFORMATION
  Report Type: 
  Country: None (occurrence: None)
  Receive Date: 20120612
  Receipt Date: 20120531
  Transmission Date: 20120825
  Serious: No
  Sender: FDA-Public Use
  Company Number: 2012SP029988

PATIENT
  Age: 70 Year
  Sex: Female

DRUGS (4)
  1. SIMVASTATIN [Concomitant]
  2. SYCREST (ASENAPINE /05706901/) 95 MG) [Suspect]
     Indication: BIPOLAR DISORDER
     Dosage: 5 MG; BID; SL, 5 MG; QD; SL
     Route: 060
     Dates: start: 20120501, end: 20120501
  3. LITHIUM [Concomitant]
  4. LEVOTHROID [Suspect]
     Indication: HYPOTHYROIDISM

REACTIONS (4)
  - OEDEMA PERIPHERAL [None]
  - ARTHRALGIA [None]
  - DRUG INTERACTION [None]
  - EYELID OEDEMA [None]
